FAERS Safety Report 8385855-0 (Version None)
Quarter: 2012Q2

REPORT INFORMATION
  Report Type: 
  Country: None (occurrence: None)
  Receive Date: 20120525
  Receipt Date: 20120515
  Transmission Date: 20120825
  Serious: Yes (Other)
  Sender: FDA-Public Use
  Company Number: CN-JNJFOC-20120501746

PATIENT
  Sex: Female
  Weight: 45 kg

DRUGS (2)
  1. RISPERIDONE [Suspect]
     Route: 048
  2. RISPERIDONE [Suspect]
     Indication: PSYCHOTIC DISORDER
     Route: 048
     Dates: start: 20110817, end: 20110829

REACTIONS (3)
  - ARRHYTHMIA [None]
  - TREMOR [None]
  - MUSCULOSKELETAL STIFFNESS [None]
